FAERS Safety Report 15283850 (Version 1)
Quarter: 2018Q3

REPORT INFORMATION
  Report Type: Spontaneous
  Country: US (occurrence: US)
  Receive Date: 20180801
  Receipt Date: 20180801
  Transmission Date: 20181010
  Serious: No
  Sender: FDA-Public Use
  Company Number: None

PATIENT
  Sex: Female
  Weight: 85.28 kg

DRUGS (5)
  1. FORTEO [Suspect]
     Active Substance: TERIPARATIDE
     Indication: OSTEOPOROSIS
     Route: 058
     Dates: start: 201807
  2. FORTEO [Suspect]
     Active Substance: TERIPARATIDE
     Indication: IMMUNOGLOBULINS ABNORMAL
     Route: 058
     Dates: start: 201807
  3. FORTEO [Suspect]
     Active Substance: TERIPARATIDE
     Indication: PRODUCT USED FOR UNKNOWN INDICATION
     Route: 058
     Dates: start: 201807
  4. FORTEO [Suspect]
     Active Substance: TERIPARATIDE
     Indication: RHEUMATOID ARTHRITIS
     Route: 058
     Dates: start: 201807
  5. FORTEO [Suspect]
     Active Substance: TERIPARATIDE
     Indication: OSTEOARTHRITIS
     Route: 058
     Dates: start: 201807

REACTIONS (2)
  - Nervousness [None]
  - Blood potassium abnormal [None]
